FAERS Safety Report 7531977-3 (Version None)
Quarter: 2011Q2

REPORT INFORMATION
  Report Type: 
  Country: None (occurrence: None)
  Receive Date: 20110608
  Receipt Date: 20110601
  Transmission Date: 20111010
  Serious: Yes (Hospitalization)
  Sender: FDA-Public Use
  Company Number: US-ACTELION-A-US2011-49086

PATIENT

DRUGS (2)
  1. TRACLEER [Suspect]
     Indication: PULMONARY ARTERIAL HYPERTENSION
     Dosage: UNK MG, UNK
     Route: 048
     Dates: start: 20101006
  2. CALCIUM CHANNEL BLOCKERS [Concomitant]

REACTIONS (4)
  - INFECTION [None]
  - CARDIAC VALVE DISEASE [None]
  - NASOPHARYNGITIS [None]
  - DIZZINESS [None]
